FAERS Safety Report 13527067 (Version 4)
Quarter: 2017Q3

REPORT INFORMATION
  Report Type: Spontaneous
  Country: CA (occurrence: CA)
  Receive Date: 20170509
  Receipt Date: 20170828
  Transmission Date: 20171127
  Serious: Yes (Other)
  Sender: FDA-Public Use
  Company Number: CA-PFIZER INC-2017049695

PATIENT
  Age: 72 Year
  Sex: Female

DRUGS (7)
  1. XELJANZ [Suspect]
     Active Substance: TOFACITINIB CITRATE
     Dosage: 2.5 MG, 2X/DAY (1/2 TABLET IN THE MORNING AND 1/2 TABLET IN THE EVENING)
     Route: 048
     Dates: end: 201708
  2. METHOTREXATE. [Concomitant]
     Active Substance: METHOTREXATE
     Indication: RHEUMATOID ARTHRITIS
     Dosage: UNK UNK, WEEKLY
     Route: 065
  3. XELJANZ [Suspect]
     Active Substance: TOFACITINIB CITRATE
     Dosage: 5 MG, DAILY (1 PILL IN THE EVENING)
     Route: 048
     Dates: start: 201702
  4. XELJANZ [Suspect]
     Active Substance: TOFACITINIB CITRATE
     Dosage: 2.5 MG, (1/2 TABLET) EVERY TWO DAYS
  5. XELJANZ [Suspect]
     Active Substance: TOFACITINIB CITRATE
     Indication: RHEUMATOID ARTHRITIS
     Dosage: 2.5 MG, 2X/DAY (1/2 TABLET IN THE MORNING AND 1/2 TABLET IN THE EVENING)
     Route: 048
     Dates: start: 20170125
  6. XELJANZ [Suspect]
     Active Substance: TOFACITINIB CITRATE
     Dosage: 5 MG, 2X/DAY
     Route: 048
  7. XELJANZ [Suspect]
     Active Substance: TOFACITINIB CITRATE
     Dosage: 2.5 MG, (1/2 TABLET) ONCE A DAY
     Route: 048

REACTIONS (8)
  - Fatigue [Unknown]
  - Gastric disorder [Unknown]
  - Pain [Recovering/Resolving]
  - Prescribed underdose [Unknown]
  - Dyspnoea [Unknown]
  - Drug ineffective [Unknown]
  - Off label use [Unknown]
  - Foot fracture [Unknown]

NARRATIVE: CASE EVENT DATE: 20170125
